APPROVED DRUG PRODUCT: BUPRENORPHINE HYDROCHLORIDE
Active Ingredient: BUPRENORPHINE HYDROCHLORIDE
Strength: EQ 2MG BASE
Dosage Form/Route: TABLET;SUBLINGUAL
Application: A201066 | Product #001
Applicant: PHARMOBEDIENT CONSULTING LLC
Approved: Mar 6, 2015 | RLD: No | RS: No | Type: DISCN